FAERS Safety Report 20020372 (Version 3)
Quarter: 2021Q4

REPORT INFORMATION
  Report Type: Spontaneous
  Country: US (occurrence: US)
  Receive Date: 20211101
  Receipt Date: 20211129
  Transmission Date: 20220303
  Serious: Yes (Other)
  Sender: FDA-Public Use
  Company Number: US-INCYTE CORPORATION-2021IN009989

PATIENT

DRUGS (1)
  1. JAKAFI [Suspect]
     Active Substance: RUXOLITINIB
     Indication: Myelofibrosis
     Dosage: 5 MILLIGRAM, BID
     Route: 048
     Dates: start: 20210202, end: 20211123

REACTIONS (5)
  - Nephrolithiasis [Unknown]
  - Feeling abnormal [Unknown]
  - White blood cell count abnormal [Unknown]
  - Renal disorder [Unknown]
  - Platelet count decreased [Unknown]
